FAERS Safety Report 25397294 (Version 1)
Quarter: 2025Q2

REPORT INFORMATION
  Report Type: Spontaneous
  Country: US (occurrence: US)
  Receive Date: 20250604
  Receipt Date: 20250604
  Transmission Date: 20250716
  Serious: No
  Sender: GALPHARM INTERNATIONAL
  Company Number: US-PERRIGO-24US004938

PATIENT
  Sex: Female
  Weight: 65.76 kg

DRUGS (5)
  1. MINOXIDIL [Suspect]
     Active Substance: MINOXIDIL
     Indication: Alopecia
     Route: 061
     Dates: start: 2021
  2. FINASTERIDE [Concomitant]
     Active Substance: FINASTERIDE
     Indication: Alopecia
     Route: 065
     Dates: start: 2022
  3. MINOXIDIL [Concomitant]
     Active Substance: MINOXIDIL
     Indication: Alopecia
     Route: 065
     Dates: start: 2022
  4. LEVOTHYROXINE [Concomitant]
     Active Substance: LEVOTHYROXINE
     Indication: Thyroid disorder
     Route: 065
  5. ROSUVASTATIN [Concomitant]
     Active Substance: ROSUVASTATIN
     Indication: Blood cholesterol increased
     Route: 065

REACTIONS (2)
  - Condition aggravated [Not Recovered/Not Resolved]
  - Inappropriate schedule of product administration [Unknown]

NARRATIVE: CASE EVENT DATE: 20210101
